FAERS Safety Report 21752957 (Version 1)
Quarter: 2022Q4

REPORT INFORMATION
  Report Type: Spontaneous
  Country: US (occurrence: US)
  Receive Date: 20221220
  Receipt Date: 20221220
  Transmission Date: 20230112
  Serious: Yes (Other)
  Sender: FDA-Public Use
  Company Number: US-BRISTOL-MYERS SQUIBB COMPANY-2022-153369

PATIENT
  Age: 68 Year
  Sex: Male
  Weight: 90.72 kg

DRUGS (14)
  1. OPDIVO [Suspect]
     Active Substance: NIVOLUMAB
     Indication: Lung neoplasm
     Route: 042
  2. OPDIVO [Suspect]
     Active Substance: NIVOLUMAB
     Indication: Hepatic neoplasm
  3. OPDIVO [Suspect]
     Active Substance: NIVOLUMAB
     Indication: Brain neoplasm
  4. BRAFTOVI [Suspect]
     Active Substance: ENCORAFENIB
     Indication: Neoplasm
     Dosage: 6 PILLS IN THE MORNING
  5. BRAFTOVI [Suspect]
     Active Substance: ENCORAFENIB
     Dosage: 3 PILLS
  6. BRAFTOVI [Suspect]
     Active Substance: ENCORAFENIB
     Dosage: 4 PILLS
  7. BRAFTOVI [Suspect]
     Active Substance: ENCORAFENIB
     Dosage: 3 PILLS
  8. MEKTOVI [Suspect]
     Active Substance: BINIMETINIB
     Indication: Neoplasm
     Dosage: 3 PILLS IN THE MORNING AND 3 AT NIGHT
  9. MEKTOVI [Suspect]
     Active Substance: BINIMETINIB
     Dosage: 3 PILLS
  10. MEKTOVI [Suspect]
     Active Substance: BINIMETINIB
     Dosage: 4 PILLS
  11. MEKTOVI [Suspect]
     Active Substance: BINIMETINIB
     Dosage: 2 PILLS IN THE MORNING AND 2 AT NIGHT
  12. IBUPROFEN [Concomitant]
     Active Substance: IBUPROFEN
     Indication: Product used for unknown indication
     Dosage: NORMALLY TAKES
  13. IBUPROFEN [Concomitant]
     Active Substance: IBUPROFEN
     Dosage: RARELY TAKES
  14. OXYCODONE [Concomitant]
     Active Substance: OXYCODONE
     Indication: Tumour pain
     Dosage: TUMOR ON HEAD WAS HURTING PRETTY BAD UNTIL STUFF KICKED IN. QUIT HURTING LIKE THE PAIN WAS AND HE ON

REACTIONS (2)
  - Hepatic enzyme increased [Not Recovered/Not Resolved]
  - Drug ineffective [Unknown]

NARRATIVE: CASE EVENT DATE: 20220101
